FAERS Safety Report 4320480-X (Version None)
Quarter: 2004Q1

REPORT INFORMATION
  Report Type: 
  Country: None (occurrence: None)
  Receive Date: 20040322
  Receipt Date: 20040311
  Transmission Date: 20041129
  Serious: Yes (Congenital Anomaly, Other)
  Sender: FDA-Public Use
  Company Number: PHEH2004US02983

PATIENT
  Age: 0 Day
  Sex: Female

DRUGS (1)
  1. ELIDEL [Suspect]
     Route: 061

REACTIONS (16)
  - CHYLOTHORAX [None]
  - COMPLICATIONS OF MATERNAL EXPOSURE TO THERAPEUTIC DRUGS [None]
  - CONGENITAL VENTRICULAR SEPTAL DEFECT [None]
  - CYSTIC LYMPHANGIOMA [None]
  - FINGER DEFORMITY [None]
  - GASTROOESOPHAGEAL REFLUX DISEASE [None]
  - GROWTH RETARDATION [None]
  - HYPERTROPHIC CARDIOMYOPATHY [None]
  - LOW SET EARS [None]
  - MATERNAL DRUGS AFFECTING FOETUS [None]
  - NOONAN SYNDROME [None]
  - POLYHYDRAMNIOS [None]
  - PREGNANCY [None]
  - PREMATURE BABY [None]
  - PREMATURE LABOUR [None]
  - PULMONARY VALVE STENOSIS [None]
